FAERS Safety Report 5442318-X (Version None)
Quarter: 2007Q3

REPORT INFORMATION
  Report Type: 
  Country: None (occurrence: None)
  Receive Date: 20070731
  Receipt Date: 20070613
  Transmission Date: 20080115
  Serious: No
  Sender: FDA-Public Use
  Company Number: US200706003248

PATIENT
  Age: 44 Year
  Sex: Male

DRUGS (2)
  1. BYETTA [Suspect]
  2. EXENATIDE [Concomitant]

REACTIONS (1)
  - DRUG DISPENSING ERROR [None]
